FAERS Safety Report 5208688-2 (Version None)
Quarter: 2007Q1

REPORT INFORMATION
  Report Type: 
  Country: None (occurrence: None)
  Receive Date: 20070116
  Receipt Date: 20070103
  Transmission Date: 20070707
  Serious: Yes (Hospitalization, Other)
  Sender: FDA-Public Use
  Company Number: PHEH2006US09717

PATIENT
  Sex: Female

DRUGS (10)
  1. PAMIDRONATE DISODIUM [Suspect]
     Indication: BREAST CANCER
  2. ZOMETA [Suspect]
     Indication: BREAST CANCER
     Dosage: 4MG QMOS
     Route: 042
     Dates: start: 20021201, end: 20030401
  3. CHEMOTHERAPEUTICS,OTHER [Concomitant]
  4. HORMONES [Concomitant]
  5. AREDIA [Suspect]
     Dosage: 90MG QMON
     Dates: start: 20001001, end: 20021101
  6. DECADRON #1 [Concomitant]
  7. TAXOL [Concomitant]
     Dates: start: 20000101
  8. TAXOL [Concomitant]
     Dates: start: 20060101
  9. DEXAMETHASONE [Concomitant]
  10. RADIATION THERAPY [Concomitant]

REACTIONS (7)
  - JAW OPERATION [None]
  - ORAL SOFT TISSUE DISORDER [None]
  - ORAL SURGERY [None]
  - OSTEITIS [None]
  - OSTEONECROSIS [None]
  - TOOTH DISORDER [None]
  - WOUND DEBRIDEMENT [None]
